FAERS Safety Report 5710414-5 (Version None)
Quarter: 2008Q2

REPORT INFORMATION
  Report Type: 
  Country: None (occurrence: None)
  Receive Date: 20080418
  Receipt Date: 20080408
  Transmission Date: 20081010
  Serious: Yes (Other)
  Sender: FDA-Public Use
  Company Number: US-PFIZER INC-2008032176

PATIENT
  Sex: Female
  Weight: 71.2 kg

DRUGS (4)
  1. LYRICA [Suspect]
     Indication: FIBROMYALGIA
     Route: 048
     Dates: start: 20080301, end: 20080301
  2. MEDROL [Suspect]
     Indication: HYPOAESTHESIA
  3. LISINOPRIL [Concomitant]
     Dosage: DAILY DOSE:10MG
  4. FUROSEMIDE [Concomitant]

REACTIONS (4)
  - ANORECTAL DISORDER [None]
  - HYPOAESTHESIA [None]
  - INTESTINAL FUNCTIONAL DISORDER [None]
  - SPINAL OSTEOARTHRITIS [None]
